FAERS Safety Report 7972614-3 (Version None)
Quarter: 2011Q4

REPORT INFORMATION
  Report Type: 
  Country: None (occurrence: None)
  Receive Date: 20111213
  Receipt Date: 20111130
  Transmission Date: 20120403
  Serious: Yes (Death, Other)
  Sender: FDA-Public Use
  Company Number: IN-RANBAXY-2011RR-50925

PATIENT
  Age: 54 Year
  Sex: Male

DRUGS (1)
  1. ATORVASTATIN [Suspect]
     Indication: PRODUCT USED FOR UNKNOWN INDICATION
     Dosage: 40 MG, UNK

REACTIONS (3)
  - CARDIAC ARREST [None]
  - HYPERNATRAEMIA [None]
  - RHABDOMYOLYSIS [None]
